FAERS Safety Report 5630389-7 (Version None)
Quarter: 2008Q1

REPORT INFORMATION
  Report Type: 
  Country: None (occurrence: None)
  Receive Date: 20080219
  Receipt Date: 20080214
  Transmission Date: 20080703
  Serious: Yes (Death, Other)
  Sender: FDA-Public Use
  Company Number: ES-BRISTOL-MYERS SQUIBB COMPANY-14077218

PATIENT
  Sex: Male

DRUGS (3)
  1. CISPLATIN [Suspect]
  2. BLEOMYCIN HCL [Suspect]
  3. METHOTREXATE [Suspect]
     Dosage: ROUTE OF ADMINISTRATION IS TAKEN AS DR

REACTIONS (4)
  - LARGE INTESTINE PERFORATION [None]
  - MULTI-ORGAN FAILURE [None]
  - NEUTROPENIC SEPSIS [None]
  - RENAL FAILURE ACUTE [None]
